FAERS Safety Report 6294957-4 (Version None)
Quarter: 2009Q3

REPORT INFORMATION
  Report Type: 
  Country: None (occurrence: None)
  Receive Date: 20090803
  Receipt Date: 20090721
  Transmission Date: 20100115
  Serious: Yes (Hospitalization)
  Sender: FDA-Public Use
  Company Number: CA-NOVOPROD-289773

PATIENT
  Sex: Male

DRUGS (13)
  1. GLUCONORM [Suspect]
     Indication: DRUG USE FOR UNKNOWN INDICATION
     Dosage: 1 MG, TID
  2. ALTACE [Concomitant]
     Dosage: 10 MG, QD
  3. POTASSIUM CHLORIDE [Concomitant]
     Dosage: 2 TAB, UNK
  4. ALDACTONE [Concomitant]
     Dosage: 25 UNK, BID
  5. METFORMIN [Concomitant]
  6. WARFARIN SODIUM [Concomitant]
  7. LIPITOR [Concomitant]
     Dosage: 10 UNK, UNK
  8. PALAFER [Concomitant]
  9. CELEXA [Concomitant]
  10. SYNTHROID [Concomitant]
  11. RISPERDAL [Concomitant]
  12. LASIX [Concomitant]
     Dosage: 80 UNK, BID
  13. HYDROMORPHONE HCL [Concomitant]

REACTIONS (3)
  - BLOOD CREATININE INCREASED [None]
  - ECG SIGNS OF MYOCARDIAL ISCHAEMIA [None]
  - HYPERKALAEMIA [None]
